FAERS Safety Report 6496488-5 (Version None)
Quarter: 2009Q4

REPORT INFORMATION
  Report Type: 
  Country: None (occurrence: None)
  Receive Date: 20091214
  Receipt Date: 20090408
  Transmission Date: 20100525
  Serious: Yes (Death, Hospitalization, Other)
  Sender: FDA-Public Use
  Company Number: AR-SANOFI-AVENTIS-D01200508122

PATIENT
  Age: 73 Year
  Sex: Male
  Weight: 65 kg

DRUGS (4)
  1. CLOPIDOGREL BISULFATE [Suspect]
     Indication: ATRIAL FIBRILLATION
     Dosage: UNIT DOSE: 75 MG
     Route: 048
     Dates: start: 20050305
  2. ASPIRIN [Concomitant]
     Indication: ATRIAL FIBRILLATION
     Route: 048
     Dates: start: 20050305
  3. DIGOXIN [Concomitant]
  4. ATENOLOL [Concomitant]

REACTIONS (4)
  - HYPONATRAEMIA [None]
  - MYELODYSPLASTIC SYNDROME [None]
  - NON-HODGKIN'S LYMPHOMA [None]
  - PNEUMONIA [None]
